FAERS Safety Report 5164005-8 (Version None)
Quarter: 2006Q4

REPORT INFORMATION
  Report Type: 
  Country: None (occurrence: None)
  Receive Date: 20061204
  Receipt Date: 20061124
  Transmission Date: 20070319
  Serious: Yes (Hospitalization)
  Sender: FDA-Public Use
  Company Number: IT-BRISTOL-MYERS SQUIBB COMPANY-13588249

PATIENT
  Age: 54 Year
  Sex: Male

DRUGS (1)
  1. PRASTEROL [Suspect]
     Route: 048

REACTIONS (6)
  - ASTHENIA [None]
  - BLOOD CREATINE PHOSPHOKINASE INCREASED [None]
  - DERMATOMYOSITIS [None]
  - ERYTHEMA [None]
  - MYALGIA [None]
  - MYOPATHY [None]
